APPROVED DRUG PRODUCT: GVOKE VIALDX
Active Ingredient: GLUCAGON
Strength: 1MG/0.2ML (1MG/0.2ML)
Dosage Form/Route: SOLUTION;INTRAVENOUS
Application: N212097 | Product #006
Applicant: XERIS PHARMACEUTICALS INC
Approved: Mar 14, 2025 | RLD: Yes | RS: Yes | Type: RX